FAERS Safety Report 14895911 (Version 4)
Quarter: 2018Q2

REPORT INFORMATION
  Report Type: Report from Study
  Country: US (occurrence: US)
  Receive Date: 20180515
  Receipt Date: 20180620
  Transmission Date: 20180711
  Serious: Yes (Hospitalization, Other)
  Sender: FDA-Public Use
  Company Number: US-GILEAD-2018-0333374

PATIENT
  Age: 73 Year
  Sex: Female

DRUGS (5)
  1. ADCIRCA [Suspect]
     Active Substance: TADALAFIL
     Indication: PULMONARY HYPERTENSION
     Dosage: 40 MG, QD
     Route: 065
     Dates: start: 20170611
  2. OXYGEN. [Concomitant]
     Active Substance: OXYGEN
  3. AMBRISENTAN [Suspect]
     Active Substance: AMBRISENTAN
     Indication: PULMONARY HYPERTENSION
     Dosage: 5 MG, QD
     Route: 065
     Dates: start: 20160126
  4. UPTRAVI [Suspect]
     Active Substance: SELEXIPAG
     Indication: PRODUCT USED FOR UNKNOWN INDICATION
     Dosage: 1000 UG, BID
     Route: 065
     Dates: start: 20170611
  5. ADCIRCA [Suspect]
     Active Substance: TADALAFIL
     Dosage: 20 MG, BID
     Route: 065

REACTIONS (9)
  - Headache [Not Recovered/Not Resolved]
  - Endocarditis [Not Recovered/Not Resolved]
  - Fluid retention [Not Recovered/Not Resolved]
  - Infection [Unknown]
  - Unevaluable event [Unknown]
  - Cough [Unknown]
  - Pyrexia [Not Recovered/Not Resolved]
  - Small intestinal haemorrhage [Unknown]
  - Oedema [Not Recovered/Not Resolved]
